FAERS Safety Report 14869339 (Version 1)
Quarter: 2018Q2

REPORT INFORMATION
  Report Type: Report from Study
  Country: FR (occurrence: FR)
  Receive Date: 20180509
  Receipt Date: 20180509
  Transmission Date: 20180711
  Serious: Yes (Hospitalization)
  Sender: FDA-Public Use
  Company Number: FR-AXELLIA-001640

PATIENT
  Age: 69 Year
  Sex: Male
  Weight: 88.5 kg

DRUGS (24)
  1. INSULIN [Concomitant]
     Active Substance: INSULIN NOS
  2. BISOCE [Concomitant]
     Active Substance: BISOPROLOL
     Indication: HYPERTENSION
     Route: 048
     Dates: start: 20170608
  3. DIFFU K [Concomitant]
     Active Substance: POTASSIUM CHLORIDE
     Dates: start: 20170701, end: 20170703
  4. GABAPENTIN. [Concomitant]
     Active Substance: GABAPENTIN
     Indication: PAIN
     Route: 048
  5. TARGOCID [Suspect]
     Active Substance: TEICOPLANIN
     Indication: OSTEOMYELITIS
     Dosage: ALSO RECEIVED FOR JOINT INFECTION FROM 7-JUL-2017 , 22-JUL-2017 ,25-JUL-2017
     Route: 042
     Dates: start: 20170704, end: 20170704
  6. DOLIPRANE [Concomitant]
     Active Substance: ACETAMINOPHEN
  7. PERFALGAN [Concomitant]
     Active Substance: ACETAMINOPHEN
     Dates: start: 20170705, end: 20170705
  8. APROVEL [Concomitant]
     Active Substance: IRBESARTAN
     Indication: HYPERTENSION
     Route: 002
     Dates: start: 20170608, end: 20170706
  9. SMECTA [Concomitant]
     Active Substance: MONTMORILLONITE
     Dates: start: 20170614
  10. SODIUM BICARBONATE. [Concomitant]
     Active Substance: SODIUM BICARBONATE
     Indication: PROPHYLAXIS
     Route: 048
     Dates: start: 20170626
  11. LOVENOX [Concomitant]
     Active Substance: ENOXAPARIN SODIUM
     Indication: PROPHYLAXIS
     Route: 058
     Dates: start: 20170610
  12. INEXIUM [Concomitant]
     Active Substance: ESOMEPRAZOLE
     Indication: PROPHYLAXIS
     Route: 048
  13. ESIDREX [Concomitant]
     Active Substance: HYDROCHLOROTHIAZIDE
     Dates: start: 20170630, end: 20170630
  14. FUROSEMIDE. [Concomitant]
     Active Substance: FUROSEMIDE
     Indication: HYPERTENSION
     Route: 048
     Dates: start: 20170630
  15. VANCOMYCIN [Suspect]
     Active Substance: VANCOMYCIN
     Indication: OSTEOMYELITIS
     Route: 042
     Dates: start: 20170629, end: 20170703
  16. PRINCI B (CYANOCOBALAMIN\PYRIDOXINE HYDROCHLORIDE\THIAMINE) [Concomitant]
     Active Substance: CYANOCOBALAMIN\PYRIDOXINE HYDROCHLORIDE\THIAMINE
     Indication: PROPHYLAXIS
     Route: 048
  17. LERCANIDIPINE [Concomitant]
     Active Substance: LERCANIDIPINE
     Indication: HYPERTENSION
     Route: 048
     Dates: start: 20170611
  18. TAHOR [Concomitant]
     Active Substance: ATORVASTATIN CALCIUM
     Indication: DYSLIPIDAEMIA
     Route: 048
  19. RIFADINE [Concomitant]
     Active Substance: RIFAMPIN
     Dates: start: 20170705
  20. CIPROFLOXACIN. [Concomitant]
     Active Substance: CIPROFLOXACIN
     Indication: OSTEOMYELITIS
     Route: 042
     Dates: start: 20170621, end: 20170711
  21. EUPRESSYL [Concomitant]
     Active Substance: URAPIDIL
     Indication: HYPERTENSION
     Route: 048
     Dates: start: 20170705
  22. TAZOCILLINE [Concomitant]
     Active Substance: PIPERACILLIN SODIUM\TAZOBACTAM SODIUM
     Indication: OSTEOMYELITIS
     Route: 042
     Dates: start: 20170621, end: 20170707
  23. KARDEGIC [Concomitant]
     Active Substance: ASPIRIN DL-LYSINE
     Indication: PROPHYLAXIS
     Route: 048
  24. MIANSERIN [Concomitant]
     Active Substance: MIANSERIN
     Indication: DEPRESSION
     Route: 048

REACTIONS (5)
  - Loss of consciousness [Recovered/Resolved]
  - Hyperthermia [Recovered/Resolved]
  - Renal impairment [Recovering/Resolving]
  - Anaemia [Not Recovered/Not Resolved]
  - General physical health deterioration [Unknown]

NARRATIVE: CASE EVENT DATE: 20170705
